FAERS Safety Report 21333973 (Version 8)
Quarter: 2024Q3

REPORT INFORMATION
  Report Type: Spontaneous
  Country: US (occurrence: US)
  Receive Date: 20220914
  Receipt Date: 20240731
  Transmission Date: 20241017
  Serious: No
  Sender: PFIZER
  Company Number: US-PFIZER INC-PV202200063169

PATIENT
  Age: 75 Year
  Sex: Male

DRUGS (5)
  1. MEKTOVI [Suspect]
     Active Substance: BINIMETINIB
     Indication: Lung neoplasm malignant
     Dosage: 15 MG, 2X/DAY (1 TABLET IN THE MORNING AND 1 TABLET AT NIGHT)
     Route: 048
  2. MEKTOVI [Suspect]
     Active Substance: BINIMETINIB
     Dosage: 15 MG, 3X/DAY (2 TABLETS 9 AM AND 1 TABLET 9 PM)
     Route: 048
  3. MEKTOVI [Suspect]
     Active Substance: BINIMETINIB
     Dosage: 45 MG, DAILY (15 MG 2 PO Q AM 1 PO Q PM)
  4. BRAFTOVI [Concomitant]
     Active Substance: ENCORAFENIB
     Indication: Lung neoplasm malignant
     Dosage: 75 MG
  5. BRAFTOVI [Concomitant]
     Active Substance: ENCORAFENIB
     Dosage: 150 MG, 1X/DAY (2 CAPSULES BY MOUTH ONCE DAILY)
     Route: 048

REACTIONS (2)
  - Pruritus [Unknown]
  - Off label use [Unknown]
